FAERS Safety Report 10215633 (Version 1)
Quarter: 2014Q2

REPORT INFORMATION
  Report Type: Spontaneous
  Country: AT (occurrence: None)
  Receive Date: 20140602
  Receipt Date: 20140602
  Transmission Date: 20141212
  Serious: Yes (Disabling, Other)
  Sender: FDA-Public Use
  Company Number: AT 2007 0001

PATIENT
  Age: 62 Year
  Sex: Female

DRUGS (3)
  1. DOTAREM (GADOTERIC ACID) [Suspect]
     Indication: ANGIOGRAM
     Dosage: 10ML (10 ML, 1 IN 1 D)
     Dates: start: 200209, end: 200209
  2. MAGNEVISTA (MEGLUMINE GADOPENTETATE) (MEGLUMINE GADOPENTATE) [Concomitant]
  3. OMNISCAN (GADODIAMIDE) (GADODIAMIDE) [Concomitant]

REACTIONS (8)
  - Nephrogenic systemic fibrosis [None]
  - Condition aggravated [None]
  - Aplasia pure red cell [None]
  - Renal impairment [None]
  - Complications of transplanted kidney [None]
  - Renal transplant [None]
  - Surgical procedure repeated [None]
  - Graft loss [None]
